FAERS Safety Report 21964439 (Version 1)
Quarter: 2023Q1

REPORT INFORMATION
  Report Type: Spontaneous
  Country: FR (occurrence: FR)
  Receive Date: 20230207
  Receipt Date: 20230207
  Transmission Date: 20230418
  Serious: Yes (Hospitalization)
  Sender: FDA-Public Use
  Company Number: None

PATIENT
  Age: 27 Year
  Sex: Male

DRUGS (3)
  1. LYRICA [Suspect]
     Active Substance: PREGABALIN
     Indication: Product used for unknown indication
     Dosage: NOT SPECIFIED
     Route: 065
     Dates: start: 20220617, end: 20220617
  2. CANNABIS SATIVA SUBSP. INDICA TOP [Suspect]
     Active Substance: CANNABIS SATIVA SUBSP. INDICA TOP
     Indication: Product used for unknown indication
     Dosage: NOT SPECIFIED
     Route: 065
     Dates: start: 2022
  3. COCAINE [Suspect]
     Active Substance: COCAINE
     Indication: Product used for unknown indication
     Dosage: NOT SPECIFIED
     Route: 065
     Dates: start: 20220617, end: 20220617

REACTIONS (3)
  - Coma [Recovered/Resolved]
  - Intentional product misuse [Unknown]
  - Drug abuse [Unknown]

NARRATIVE: CASE EVENT DATE: 20220101
